FAERS Safety Report 25961436 (Version 1)
Quarter: 2025Q4

REPORT INFORMATION
  Report Type: Spontaneous
  Country: US (occurrence: US)
  Receive Date: 20251027
  Receipt Date: 20251027
  Transmission Date: 20260118
  Serious: Yes (Death, Other)
  Sender: JOHNSON AND JOHNSON
  Company Number: US-JNJFOC-20251027220

PATIENT
  Age: 78 Year
  Sex: Male

DRUGS (1)
  1. CARVYKTI [Suspect]
     Active Substance: CILTACABTAGENE AUTOLEUCEL
     Indication: Product used for unknown indication

REACTIONS (5)
  - Death [Fatal]
  - Cranial nerve paralysis [Unknown]
  - Cytomegalovirus infection reactivation [Unknown]
  - Cholecystitis [Unknown]
  - Diarrhoea [Unknown]
